FAERS Safety Report 12634300 (Version 2)
Quarter: 2016Q3

REPORT INFORMATION
  Report Type: Report from Study
  Country: JP (occurrence: JP)
  Receive Date: 20160809
  Receipt Date: 20160929
  Transmission Date: 20161109
  Serious: Yes (Hospitalization)
  Sender: FDA-Public Use
  Company Number: JP-ASTRAZENECA-2016SE75928

PATIENT
  Age: 52 Year
  Sex: Female

DRUGS (11)
  1. DECADRON [Concomitant]
     Active Substance: DEXAMETHASONE
     Route: 048
     Dates: start: 20160611, end: 20160717
  2. TAGRISSO [Suspect]
     Active Substance: OSIMERTINIB
     Indication: NON-SMALL CELL LUNG CANCER
     Route: 048
     Dates: start: 20160707
  3. CELECOX [Concomitant]
     Active Substance: CELECOXIB
     Route: 048
     Dates: start: 20160314, end: 20160717
  4. TRYPTANOL [Concomitant]
     Active Substance: AMITRIPTYLINE
     Route: 048
     Dates: start: 20160320, end: 20160717
  5. NEXIUM [Concomitant]
     Active Substance: ESOMEPRAZOLE MAGNESIUM
     Indication: PROPHYLAXIS AGAINST GASTROINTESTINAL ULCER
     Route: 048
     Dates: start: 20160314, end: 20160717
  6. MYONAL [Concomitant]
     Active Substance: EPERISONE HYDROCHLORIDE
     Indication: PAIN
     Route: 048
     Dates: start: 20160518, end: 20160717
  7. MEDICON [Concomitant]
     Active Substance: DEXTROMETHORPHAN HYDROBROMIDE
     Indication: COUGH
     Route: 048
     Dates: start: 20160501, end: 20160717
  8. MAGLAX [Concomitant]
     Active Substance: MAGNESIUM OXIDE
     Indication: CONSTIPATION
     Route: 048
     Dates: start: 20160327, end: 20160717
  9. KETALAR [Concomitant]
     Active Substance: KETAMINE HYDROCHLORIDE
     Indication: PAIN
     Dosage: 20 MG DAILY, CONTINUOUS ADMINISTRATION
     Route: 058
     Dates: start: 20160325, end: 20160719
  10. MORPHINE HYDROCHLORIDE HYDRATE [Concomitant]
     Active Substance: MORPHINE HYDROCHLORIDE
     Indication: PAIN
     Dosage: 30 MG DAILY, CONTINUOUS ADMINISTRATION
     Route: 058
     Dates: start: 20160526, end: 20160719
  11. TAGRISSO [Suspect]
     Active Substance: OSIMERTINIB
     Indication: NON-SMALL CELL LUNG CANCER
     Route: 048
     Dates: start: 20160528, end: 20160624

REACTIONS (1)
  - Electrocardiogram QT prolonged [Recovered/Resolved]

NARRATIVE: CASE EVENT DATE: 20160624
